FAERS Safety Report 15954022 (Version 1)
Quarter: 2019Q1

REPORT INFORMATION
  Report Type: Spontaneous
  Country: US (occurrence: US)
  Receive Date: 20190213
  Receipt Date: 20190213
  Transmission Date: 20190417
  Serious: No
  Sender: FDA-Public Use
  Company Number: US-BRISTOL-MYERS SQUIBB COMPANY-BMS-2019-009927

PATIENT
  Sex: Male
  Weight: 99.79 kg

DRUGS (1)
  1. ELIQUIS [Suspect]
     Active Substance: APIXABAN
     Indication: PULMONARY EMBOLISM
     Dosage: 5 MG, BID
     Route: 048
     Dates: start: 20181009

REACTIONS (7)
  - Hypoaesthesia [Unknown]
  - Insomnia [Unknown]
  - Personality change [Unknown]
  - Paraesthesia [Unknown]
  - Emotional disorder [Unknown]
  - Affective disorder [Unknown]
  - Depression [Unknown]
